FAERS Safety Report 18814148 (Version 1)
Quarter: 2021Q1

REPORT INFORMATION
  Report Type: Other
  Country: US (occurrence: US)
  Receive Date: 20210201
  Receipt Date: 20210201
  Transmission Date: 20210419
  Serious: Yes (Hospitalization)
  Sender: FDA-Public Use
  Company Number: US-ORCHID HEALTHCARE-2106085

PATIENT
  Age: 24 Year
  Sex: Female

DRUGS (1)
  1. DIVALPROEX SODIUM. [Suspect]
     Active Substance: DIVALPROEX SODIUM
     Route: 065

REACTIONS (10)
  - Encephalopathy [Recovering/Resolving]
  - Agitation [Recovering/Resolving]
  - Hypocalcaemia [Recovering/Resolving]
  - Speech disorder [Recovering/Resolving]
  - Osmolar gap increased [Unknown]
  - Overdose [Unknown]
  - Toxicity to various agents [Recovering/Resolving]
  - Hypernatraemia [Recovering/Resolving]
  - Hyperammonaemia [Recovering/Resolving]
  - Metabolic acidosis [Recovering/Resolving]
